FAERS Safety Report 20507707 (Version 1)
Quarter: 2022Q1

REPORT INFORMATION
  Report Type: Spontaneous
  Country: GT (occurrence: GT)
  Receive Date: 20220223
  Receipt Date: 20220223
  Transmission Date: 20220423
  Serious: Yes (Hospitalization)
  Sender: FDA-Public Use
  Company Number: GT-DSJP-DSE-2022-105653

PATIENT
  Age: 89 Year
  Sex: Female

DRUGS (1)
  1. EDOXABAN TOSYLATE [Suspect]
     Active Substance: EDOXABAN TOSYLATE
     Indication: Anticoagulant therapy
     Dosage: 30 MG, QD
     Route: 048
     Dates: start: 202001, end: 202010

REACTIONS (5)
  - Lower gastrointestinal haemorrhage [Recovered/Resolved]
  - Diverticulum [Recovered/Resolved]
  - Retroperitoneal haematoma [Recovered/Resolved]
  - Superficial vein thrombosis [Recovered/Resolved]
  - Deep vein thrombosis [Recovered/Resolved]

NARRATIVE: CASE EVENT DATE: 20200101
